FAERS Safety Report 11464678 (Version 2)
Quarter: 2016Q1

REPORT INFORMATION
  Report Type: Report from Study
  Country: US (occurrence: US)
  Receive Date: 20150906
  Receipt Date: 20160330
  Transmission Date: 20160525
  Serious: Yes (Death)
  Sender: FDA-Public Use
  Company Number: PHEH2015US017256

PATIENT
  Age: 27 Year
  Sex: Male
  Weight: 63.95 kg

DRUGS (1)
  1. TEGRETOL XR [Suspect]
     Active Substance: CARBAMAZEPINE
     Indication: EPILEPSY
     Dosage: 400 MG, BID
     Route: 048
     Dates: start: 20120823

REACTIONS (1)
  - Death [Fatal]

NARRATIVE: CASE EVENT DATE: 20150225
